FAERS Safety Report 8008379-9 (Version None)
Quarter: 2011Q4

REPORT INFORMATION
  Report Type: 
  Country: None (occurrence: None)
  Receive Date: 20111227
  Receipt Date: 20111219
  Transmission Date: 20120403
  Serious: Yes (Hospitalization)
  Sender: FDA-Public Use
  Company Number: US-ASTRAZENECA-2011SE74998

PATIENT
  Age: 32 Year
  Sex: Male

DRUGS (1)
  1. SEROQUEL [Suspect]
     Route: 048

REACTIONS (4)
  - MENTAL DISORDER [None]
  - BIPOLAR DISORDER [None]
  - SCHIZOPHRENIA [None]
  - ANXIETY [None]
